FAERS Safety Report 10207562 (Version 1)
Quarter: 2014Q2

REPORT INFORMATION
  Report Type: Spontaneous
  Country: US (occurrence: None)
  Receive Date: 20140528
  Receipt Date: 20140528
  Transmission Date: 20141212
  Serious: Yes (Other)
  Sender: FDA-Public Use
  Company Number: None

PATIENT
  Age: 48 Year
  Sex: Female
  Weight: 52.16 kg

DRUGS (1)
  1. HYDROXYCHLOROQUINE 200MG BID [Suspect]
     Indication: CUTANEOUS LUPUS ERYTHEMATOSUS
     Dates: start: 201401, end: 201405

REACTIONS (2)
  - Drug ineffective [None]
  - Product substitution issue [None]
